FAERS Safety Report 6672841-1 (Version None)
Quarter: 2010Q2

REPORT INFORMATION
  Report Type: 
  Country: None (occurrence: None)
  Receive Date: 20100408
  Receipt Date: 20100326
  Transmission Date: 20101027
  Serious: Yes (Hospitalization)
  Sender: FDA-Public Use
  Company Number: PHHY2010DE19372

PATIENT
  Age: 84 Year
  Sex: Female
  Weight: 90 kg

DRUGS (1)
  1. EXELON [Suspect]
     Indication: DEMENTIA
     Dosage: 4.6 MG, QD
     Route: 062
     Dates: start: 20100225

REACTIONS (4)
  - C-REACTIVE PROTEIN INCREASED [None]
  - ESCHERICHIA URINARY TRACT INFECTION [None]
  - LEUKOCYTOSIS [None]
  - MORGANELLA INFECTION [None]
